FAERS Safety Report 7108228-7 (Version None)
Quarter: 2010Q4

REPORT INFORMATION
  Report Type: 
  Country: None (occurrence: None)
  Receive Date: 20101117
  Receipt Date: 20101112
  Transmission Date: 20110411
  Serious: Yes (Death, Hospitalization, Other)
  Sender: FDA-Public Use
  Company Number: PHHY2010JP64016

PATIENT
  Sex: Female
  Weight: 42 kg

DRUGS (7)
  1. DIOVAN [Suspect]
     Indication: HYPERTENSION
     Dosage: 80 MG DAILY
     Route: 048
     Dates: start: 19981120, end: 20101001
  2. PLETAL [Suspect]
     Dosage: 50 MG, DAILY
     Route: 048
     Dates: start: 20050204, end: 20101001
  3. NORVASC [Concomitant]
     Dosage: 5 MG
     Route: 048
  4. 8-HOUR BAYER [Concomitant]
     Dosage: 100 MG, UNK
     Route: 048
     Dates: start: 20050204, end: 20101001
  5. GASTER [Concomitant]
     Dosage: 20 MG, UNK
     Route: 048
     Dates: start: 20101001
  6. DEPAS [Concomitant]
     Dosage: 0.5 MG, UNK
     Route: 048
     Dates: end: 20101001
  7. BUP-4 [Concomitant]
     Route: 048

REACTIONS (13)
  - BLOOD LACTATE DEHYDROGENASE INCREASED [None]
  - CEREBRAL INFARCTION [None]
  - COUGH [None]
  - DYSPNOEA [None]
  - INTERSTITIAL LUNG DISEASE [None]
  - OEDEMA PERIPHERAL [None]
  - PALPITATIONS [None]
  - PERICARDIAL EFFUSION [None]
  - PLEURAL EFFUSION [None]
  - PULMONARY FUNCTION TEST DECREASED [None]
  - PULMONARY OEDEMA [None]
  - RALES [None]
  - SURFACTANT PROTEIN INCREASED [None]
